FAERS Safety Report 15331415 (Version 2)
Quarter: 2018Q3

REPORT INFORMATION
  Report Type: Report from Study
  Country: US (occurrence: US)
  Receive Date: 20180829
  Receipt Date: 20180914
  Transmission Date: 20181010
  Serious: Yes (Other)
  Sender: FDA-Public Use
  Company Number: US-TEVA-2018-US-948460

PATIENT
  Age: 35 Year
  Sex: Female

DRUGS (4)
  1. PREDNISONE. [Suspect]
     Active Substance: PREDNISONE
     Indication: ACUTE ZONAL OCCULT OUTER RETINOPATHY
     Dosage: PREDNISONE DOSE WAS TAPERED TO UNKNOWN DOSE PRIOR TO DISCONTINUATION
     Route: 065
  2. DEXAMETHASONE. [Suspect]
     Active Substance: DEXAMETHASONE
     Indication: ACUTE ZONAL OCCULT OUTER RETINOPATHY
     Dosage: INTO THE RIGHT EYE; A TOTAL OF ONE INTRAVITREAL TREATMENTS TO THE RIGHT EYE
     Route: 050
  3. PREDNISONE. [Suspect]
     Active Substance: PREDNISONE
     Indication: ACUTE ZONAL OCCULT OUTER RETINOPATHY
     Route: 065
  4. OZURDEX [Suspect]
     Active Substance: DEXAMETHASONE
     Indication: ACUTE ZONAL OCCULT OUTER RETINOPATHY
     Dosage: INTO THE LEFT EYE; A TOTAL OF THREE INTRAVITREAL TREATMENTS TO THE LEFT EYE
     Route: 050

REACTIONS (2)
  - Ocular hypertension [Recovering/Resolving]
  - Cataract subcapsular [Recovering/Resolving]
